FAERS Safety Report 11157707 (Version 1)
Quarter: 2015Q2

REPORT INFORMATION
  Report Type: Spontaneous
  Country: US (occurrence: None)
  Receive Date: 20150602
  Receipt Date: 20150602
  Transmission Date: 20150821
  Serious: Yes (Hospitalization)
  Sender: FDA-Public Use
  Company Number: None

PATIENT
  Age: 32 Year
  Sex: Male
  Weight: 79.09 kg

DRUGS (1)
  1. OXYCODONE [Suspect]
     Active Substance: OXYCODONE
     Indication: SLEEP DISORDER
     Dates: start: 20150123, end: 20150123

REACTIONS (5)
  - Accidental overdose [None]
  - Sedation [None]
  - Mental status changes [None]
  - Self-medication [None]
  - Confusional state [None]

NARRATIVE: CASE EVENT DATE: 20150123
